FAERS Safety Report 9693155 (Version 1)
Quarter: 2013Q4

REPORT INFORMATION
  Report Type: Spontaneous
  Country: US (occurrence: US)
  Receive Date: 20131118
  Receipt Date: 20131118
  Transmission Date: 20140711
  Serious: Yes (Other)
  Sender: FDA-Public Use
  Company Number: US-009507513-1311USA005459

PATIENT
  Sex: Female

DRUGS (1)
  1. SINGULAIR [Suspect]
     Indication: ASTHMA
     Dosage: ONE TIME A DAY
     Route: 048

REACTIONS (4)
  - Acne [Unknown]
  - Pyrexia [Unknown]
  - Rash pruritic [Unknown]
  - Swelling [Unknown]
